FAERS Safety Report 6656820-6 (Version None)
Quarter: 2010Q1

REPORT INFORMATION
  Report Type: 
  Country: None (occurrence: None)
  Receive Date: 20100325
  Receipt Date: 20100309
  Transmission Date: 20100710
  Serious: Yes (Death, Hospitalization, Disabling)
  Sender: FDA-Public Use
  Company Number: 2009AC000213

PATIENT
  Age: 70 Year
  Sex: Male

DRUGS (31)
  1. DIGOXIN [Suspect]
     Dosage: 0.25 MG; QD; PO
     Route: 048
     Dates: start: 20000101, end: 20071101
  2. DIGOXIN [Suspect]
     Dosage: 0.375 MG; QD; PO
     Route: 048
     Dates: start: 20071101, end: 20071108
  3. DIGOXIN [Suspect]
     Dosage: .25 MG; QD; PO
     Route: 048
     Dates: start: 20071108, end: 20071120
  4. DIGOXIN [Suspect]
     Dosage: 0. 5 MG; QD; PO
     Route: 048
     Dates: start: 20071120
  5. COUMADIN [Concomitant]
  6. HEPARIN [Concomitant]
  7. METOPROLOL TARTRATE [Concomitant]
  8. PHENYTOIN [Concomitant]
  9. ALBUTEROL [Concomitant]
  10. ATROVENT [Concomitant]
  11. OCUFLOX [Concomitant]
  12. ZYRTEC [Concomitant]
  13. TRIMOX [Concomitant]
  14. IBUPROFEN [Concomitant]
  15. VIAGRA [Concomitant]
  16. AMOXICILLIN [Concomitant]
  17. PROAIR HFA [Concomitant]
  18. FUROSEMIDE [Concomitant]
  19. ADVAIR DISKUS 100/50 [Concomitant]
  20. ALUPENT [Concomitant]
  21. THEODAIRE [Concomitant]
  22. . [Concomitant]
  23. WARFARIN SODIUM [Concomitant]
  24. AEROBID [Concomitant]
  25. . [Concomitant]
  26. TOPROL-XL [Concomitant]
  27. DILANTIN [Concomitant]
  28. . [Concomitant]
  29. LASIX [Concomitant]
  30. DILANTIN [Concomitant]
  31. . [Concomitant]

REACTIONS (59)
  - AORTIC STENOSIS [None]
  - ASTHMA [None]
  - ATRIAL FIBRILLATION [None]
  - BRADYCARDIA [None]
  - CARDIAC ARREST [None]
  - CARDIOMEGALY [None]
  - CAROTID ARTERIOSCLEROSIS [None]
  - CEREBRAL ARTERY EMBOLISM [None]
  - CEREBROVASCULAR ACCIDENT [None]
  - CHRONIC OBSTRUCTIVE PULMONARY DISEASE [None]
  - COAGULOPATHY [None]
  - CONVULSION [None]
  - COUGH [None]
  - DEPRESSION [None]
  - DIARRHOEA [None]
  - DISORIENTATION [None]
  - DIZZINESS [None]
  - DROOLING [None]
  - DYSARTHRIA [None]
  - DYSPNOEA [None]
  - ECONOMIC PROBLEM [None]
  - EMOTIONAL DISTRESS [None]
  - FALL [None]
  - FAMILY STRESS [None]
  - FRACTURE [None]
  - GASTROINTESTINAL HAEMORRHAGE [None]
  - HAEMODIALYSIS [None]
  - HAEMOLYSIS [None]
  - HAEMOTHORAX [None]
  - HEART VALVE STENOSIS [None]
  - HEPATIC CONGESTION [None]
  - HEPATIC FAILURE [None]
  - HEPATIC FUNCTION ABNORMAL [None]
  - HYPERTENSION [None]
  - HYPOTENSION [None]
  - INTERNATIONAL NORMALISED RATIO INCREASED [None]
  - MITRAL VALVE DISEASE [None]
  - MITRAL VALVE STENOSIS [None]
  - MULTI-ORGAN FAILURE [None]
  - MULTIPLE INJURIES [None]
  - MUSCLE TWITCHING [None]
  - NASAL CONGESTION [None]
  - NOCTURIA [None]
  - ORTHOPNOEA [None]
  - PAIN [None]
  - PARTNER STRESS [None]
  - PNEUMONIA [None]
  - PYREXIA [None]
  - REFUSAL OF TREATMENT BY PATIENT [None]
  - RENAL FAILURE [None]
  - RESPIRATORY FAILURE [None]
  - RIB FRACTURE [None]
  - SEPSIS [None]
  - SOCIAL PROBLEM [None]
  - THERAPEUTIC AGENT TOXICITY [None]
  - TRANSIENT ISCHAEMIC ATTACK [None]
  - TRAUMATIC LUNG INJURY [None]
  - TREATMENT NONCOMPLIANCE [None]
  - VISUAL IMPAIRMENT [None]
